FAERS Safety Report 9357014 (Version 1)
Quarter: 2013Q2

REPORT INFORMATION
  Report Type: Spontaneous
  Country: GB (occurrence: GB)
  Receive Date: 20130620
  Receipt Date: 20130620
  Transmission Date: 20140414
  Serious: Yes (Death)
  Sender: FDA-Public Use
  Company Number: GB-RANBAXY-2013R1-70307

PATIENT
  Age: 67 Year
  Sex: Female

DRUGS (6)
  1. SERTRALINE [Suspect]
     Indication: NOSOCOMIAL INFECTION
     Dosage: UNK
     Route: 048
     Dates: start: 20090901, end: 20090906
  2. CLARITHROMYCIN [Suspect]
     Indication: NOSOCOMIAL INFECTION
     Dosage: UNK
     Route: 048
     Dates: start: 20090901, end: 20090906
  3. ERYTHROMYCIN [Suspect]
     Indication: NOSOCOMIAL INFECTION
     Dosage: UNK
     Route: 048
     Dates: start: 20090901, end: 20090906
  4. AUGMENTIN [Suspect]
     Indication: NOSOCOMIAL INFECTION
     Dosage: UNK
     Route: 048
     Dates: start: 20090901, end: 20090906
  5. DEXAMETHASONE [Suspect]
     Indication: NOSOCOMIAL INFECTION
     Dosage: UNK
     Route: 048
     Dates: start: 20090901, end: 20090906
  6. OXYCODONE [Suspect]
     Indication: NOSOCOMIAL INFECTION
     Dosage: UNK
     Route: 048
     Dates: start: 20090901, end: 20090906

REACTIONS (2)
  - Dyspnoea [Not Recovered/Not Resolved]
  - Respiratory disorder [Fatal]
